FAERS Safety Report 12511282 (Version 2)
Quarter: 2016Q3

REPORT INFORMATION
  Report Type: Spontaneous
  Country: IE (occurrence: IE)
  Receive Date: 20160629
  Receipt Date: 20160818
  Transmission Date: 20161109
  Serious: Yes (Hospitalization)
  Sender: FDA-Public Use
  Company Number: IE-009507513-1606IRL011052

PATIENT
  Age: 38 Year
  Sex: Female
  Weight: 71 kg

DRUGS (11)
  1. ELTROXIN [Concomitant]
     Active Substance: LEVOTHYROXINE
     Dosage: SAT + SUN
  2. PUREGON [Suspect]
     Active Substance: FOLLITROPIN
     Indication: IN VITRO FERTILISATION
     Dosage: 125 IU DAILY
     Route: 058
     Dates: start: 20160310, end: 20160326
  3. ORGALUTRAN [Suspect]
     Active Substance: GANIRELIX ACETATE
     Indication: IN VITRO FERTILISATION
     Dosage: 250 MICROGRAM, QD
     Route: 058
     Dates: start: 20160313, end: 20160327
  4. ELTROXIN [Concomitant]
     Active Substance: LEVOTHYROXINE
     Dosage: MON-FRI
  5. SERETIDE [Concomitant]
     Active Substance: FLUTICASONE PROPIONATE\SALMETEROL XINAFOATE
     Indication: ASTHMA
  6. YASMIN [Suspect]
     Active Substance: DROSPIRENONE\ETHINYL ESTRADIOL
     Dosage: UNK
     Route: 048
     Dates: end: 20160302
  7. INOSITOL [Suspect]
     Active Substance: INOSITOL
     Indication: POLYCYSTIC OVARIES
     Dosage: UNK, BID
  8. PREGNYL [Suspect]
     Active Substance: CHORIOGONADOTROPIN ALFA
     Indication: IN VITRO FERTILISATION
     Dosage: 5000 IU X 2 AMPS
     Route: 058
     Dates: start: 20160327, end: 20160327
  9. MEPERIDINE HYDROCHLORIDE. [Concomitant]
     Active Substance: MEPERIDINE HYDROCHLORIDE
  10. DIAZEPAN [Concomitant]
     Active Substance: DIAZEPAM
     Route: 042
  11. CRINONE [Suspect]
     Active Substance: PROGESTERONE
     Dosage: NOCTE
     Dates: start: 20160329, end: 20160330

REACTIONS (2)
  - Pulmonary embolism [Recovered/Resolved]
  - Dyspnoea [Recovered/Resolved]

NARRATIVE: CASE EVENT DATE: 20160401
